FAERS Safety Report 10644042 (Version 4)
Quarter: 2015Q2

REPORT INFORMATION
  Report Type: Spontaneous
  Country: US (occurrence: US)
  Receive Date: 20141210
  Receipt Date: 20150511
  Transmission Date: 20150821
  Serious: Yes (Other)
  Sender: FDA-Public Use
  Company Number: US-PFIZER INC-2014333583

PATIENT
  Age: 66 Year
  Sex: Female

DRUGS (14)
  1. HYDROCODONE/PARACETAMOL [Concomitant]
     Dosage: 5/325, OCCASIONALLY (AS NEEDED)
  2. SUTENT [Suspect]
     Active Substance: SUNITINIB MALATE
     Indication: RENAL CELL CARCINOMA STAGE IV
     Dosage: 50 MG, CYCLIC (1 THROUGH 28 OF AN EXPECTED 42-DAY CYCLE)
     Route: 048
     Dates: start: 20141029, end: 20141124
  3. VICODIN [Suspect]
     Active Substance: ACETAMINOPHEN\HYDROCODONE BITARTRATE
     Dosage: UNK, AS NEEDED
  4. COMBIVENT [Concomitant]
     Active Substance: ALBUTEROL SULFATE\IPRATROPIUM BROMIDE
     Dosage: 1 PUFF, 2X/DAY, AS NEEDED
     Route: 055
  5. MIRALAX [Concomitant]
     Active Substance: POLYETHYLENE GLYCOL 3350
     Dosage: 17 G, AS NEEDED
  6. POTASSIUM [Concomitant]
     Active Substance: POTASSIUM
     Dosage: 10 MEQ, 1X/DAY
  7. TYLENOL [Concomitant]
     Active Substance: ACETAMINOPHEN
     Indication: HEADACHE
     Dosage: 500 MG, AS NEEDED
  8. SUTENT [Suspect]
     Active Substance: SUNITINIB MALATE
     Dosage: 37.5 MG, DAILY, CYCLE 2
  9. SUTENT [Suspect]
     Active Substance: SUNITINIB MALATE
     Dosage: 25 MG, DAILY, CYCLE 3
  10. SUTENT [Suspect]
     Active Substance: SUNITINIB MALATE
     Dosage: 37.5 MG, DAILY, CYCLE 4
  11. FLOVENT [Concomitant]
     Active Substance: FLUTICASONE PROPIONATE
     Dosage: 1 PUFF, DAILY
     Route: 055
  12. FLONASE [Concomitant]
     Active Substance: FLUTICASONE PROPIONATE
     Dosage: 1 SPRAY, DAILY
     Route: 045
  13. ONDANSETRON [Concomitant]
     Active Substance: ONDANSETRON
     Dosage: 4 MG, EVERY 8 HOURS AS NEEDED
  14. ALOE VERA [Concomitant]
     Active Substance: ALOE VERA LEAF
     Dosage: 25 MG, DAILY AS NEEDED
     Route: 048

REACTIONS (15)
  - Dysgeusia [Unknown]
  - Lung disorder [Unknown]
  - Fatigue [Not Recovered/Not Resolved]
  - Abdominal discomfort [Unknown]
  - Stomatitis [Recovering/Resolving]
  - Glossodynia [Not Recovered/Not Resolved]
  - Abdominal pain [Unknown]
  - Rash [Recovering/Resolving]
  - Nephrolithiasis [Unknown]
  - Oral pain [Unknown]
  - Stomatitis [Unknown]
  - Decreased appetite [Recovering/Resolving]
  - Pain of skin [Recovering/Resolving]
  - Nausea [Recovering/Resolving]
  - Nephritis [Unknown]
